FAERS Safety Report 10244668 (Version 2)
Quarter: 2014Q2

REPORT INFORMATION
  Report Type: Spontaneous
  Country: IT (occurrence: IT)
  Receive Date: 20140618
  Receipt Date: 20140619
  Transmission Date: 20141212
  Serious: Yes (Hospitalization)
  Sender: FDA-Public Use
  Company Number: IT-GLAXOSMITHKLINE-B1004191A

PATIENT
  Age: 50 Year
  Sex: Male

DRUGS (5)
  1. AVODART [Suspect]
     Indication: SUICIDE ATTEMPT
     Dosage: 5MG PER DAY
     Route: 048
     Dates: start: 20140505
  2. SILODOSIN [Suspect]
     Indication: SUICIDE ATTEMPT
     Dosage: 10CAP PER DAY
     Route: 048
     Dates: start: 20140505
  3. STILNOX [Suspect]
     Indication: SUICIDE ATTEMPT
     Dosage: 280MG PER DAY
     Route: 048
     Dates: start: 20140505
  4. ZYPREXA [Suspect]
     Indication: SUICIDE ATTEMPT
     Dosage: 100MG PER DAY
     Route: 048
     Dates: start: 20140505
  5. RIVOTRIL [Suspect]
     Indication: SUICIDE ATTEMPT
     Dosage: 20ML PER DAY
     Route: 048
     Dates: start: 20140505

REACTIONS (2)
  - Suicide attempt [Recovered/Resolved]
  - Overdose [Unknown]
